FAERS Safety Report 21194531 (Version 1)
Quarter: 2022Q3

REPORT INFORMATION
  Report Type: Report from Study
  Country: GB (occurrence: GB)
  Receive Date: 20220810
  Receipt Date: 20220810
  Transmission Date: 20221026
  Serious: Yes (Hospitalization)
  Sender: FDA-Public Use
  Company Number: GB-Merck Healthcare KGaA-9341190

PATIENT
  Age: 53 Year
  Sex: Female

DRUGS (27)
  1. CETUXIMAB [Suspect]
     Active Substance: CETUXIMAB
     Indication: Squamous cell carcinoma of head and neck
     Dosage: 400 MG/M2, UNKNOWN
     Route: 042
     Dates: start: 20220422, end: 20220422
  2. CETUXIMAB [Suspect]
     Active Substance: CETUXIMAB
     Dosage: 250 MG/M2, WEEKLY (1/W)
     Route: 042
     Dates: start: 20220429
  3. CETUXIMAB [Suspect]
     Active Substance: CETUXIMAB
     Dosage: 250 MG/M2, WEEKLY (1/W)
     Route: 042
     Dates: start: 20220715, end: 20220715
  4. GABAPENTIN [Concomitant]
     Active Substance: GABAPENTIN
     Indication: Pain
     Dosage: 600 MG, UNK
     Route: 048
     Dates: start: 201703, end: 202207
  5. GABAPENTIN [Concomitant]
     Active Substance: GABAPENTIN
     Indication: Osteoarthritis
     Dosage: 400 MG, UNK
     Route: 048
     Dates: start: 202207
  6. MORPHINE SULFATE [Concomitant]
     Active Substance: MORPHINE SULFATE
     Indication: Pain
     Dosage: 30 MG, UNK
     Route: 048
     Dates: start: 202202, end: 202206
  7. MORPHINE SULFATE [Concomitant]
     Active Substance: MORPHINE SULFATE
     Indication: Oral pain
     Dosage: 10 MG, UNK
     Route: 048
     Dates: start: 202206, end: 202207
  8. MORPHINE SULFATE [Concomitant]
     Active Substance: MORPHINE SULFATE
     Indication: Osteoarthritis
     Dosage: 30 MG, UNK
     Route: 048
     Dates: start: 202207
  9. ACETAMINOPHEN [Concomitant]
     Active Substance: ACETAMINOPHEN
     Indication: Product used for unknown indication
     Dosage: 1 G, UNK
     Route: 048
  10. OMEPRAZOLE [Concomitant]
     Active Substance: OMEPRAZOLE
     Indication: Prophylaxis
     Dosage: UNK, DAILY
     Route: 048
     Dates: start: 201108
  11. AMLODIPINE BESYLATE [Concomitant]
     Active Substance: AMLODIPINE BESYLATE
     Indication: Hypertension
     Dosage: UNK, DAILY
     Route: 048
     Dates: start: 202109
  12. FLUOXETINE [Concomitant]
     Active Substance: FLUOXETINE HYDROCHLORIDE
     Indication: Depression
     Dosage: UNK, DAILY
     Route: 048
     Dates: start: 201408
  13. FLUOXETINE [Concomitant]
     Active Substance: FLUOXETINE HYDROCHLORIDE
     Dosage: UNK, DAILY
     Route: 048
     Dates: start: 2017
  14. ATORVASTATIN CALCIUM [Concomitant]
     Active Substance: ATORVASTATIN CALCIUM
     Indication: Blood cholesterol increased
     Dosage: UNK, DAILY
     Route: 048
     Dates: start: 202001
  15. ORAMORPH SR SUSTAINED RELEASE [Concomitant]
     Active Substance: MORPHINE SULFATE
     Indication: Pain
     Dosage: UNK, PRN
     Route: 048
     Dates: start: 202112
  16. CLONAZEPAM [Concomitant]
     Active Substance: CLONAZEPAM
     Indication: Insomnia
     Dosage: UNK, DAILY
     Route: 048
     Dates: start: 20220312, end: 202205
  17. CO-AMOXICLAV [AMOXICILLIN;CLAVULANATE POTASSI [Concomitant]
     Indication: Urinary tract infection
     Dosage: 625 MG, UNK
     Route: 048
     Dates: start: 20220520
  18. CO-AMOXICLAV [AMOXICILLIN;CLAVULANATE POTASSI [Concomitant]
     Dosage: 625 MG, UNK
     Route: 048
     Dates: start: 20220716
  19. METOCLOPRAMIDE HYDROCHLORIDE [Concomitant]
     Active Substance: METOCLOPRAMIDE HYDROCHLORIDE
     Indication: Nausea
     Dosage: 10 MG, UNK
     Route: 048
     Dates: start: 20220610
  20. DULOXETINE HYDROCHLORIDE [Concomitant]
     Active Substance: DULOXETINE HYDROCHLORIDE
     Indication: Depression
     Dosage: UNK, DAILY
     Route: 048
     Dates: start: 202207
  21. CHLORPHENIRAMINE MALEATE [Concomitant]
     Active Substance: CHLORPHENIRAMINE MALEATE
     Indication: Pruritus
     Dosage: 4 MG, UNK
     Route: 048
     Dates: start: 20220707
  22. MAGNESIUM SULFATE [Concomitant]
     Active Substance: MAGNESIUM SULFATE
     Indication: Blood magnesium decreased
     Dosage: 243 MG, UNK
     Route: 048
     Dates: start: 20220708
  23. NITROFURANTOIN [Concomitant]
     Active Substance: NITROFURANTOIN
     Indication: Urinary tract infection
     Dosage: UNK, DAILY
     Route: 048
     Dates: start: 20220715, end: 20220715
  24. DICLOFENAC SODIUM [Concomitant]
     Active Substance: DICLOFENAC SODIUM
     Indication: Osteoarthritis
     Dosage: UNK, UNKNOWN
     Route: 061
     Dates: start: 20220725
  25. POTASSIUM [Concomitant]
     Active Substance: POTASSIUM
     Indication: Blood magnesium decreased
     Dosage: 1 DOSAGE FORM, UNK
     Route: 048
     Dates: start: 202207
  26. CYCLIZINE [CYCLIZINE HYDROCHLORIDE] [Concomitant]
     Indication: Nausea
     Dosage: 50 MG, UNK
     Route: 048
     Dates: start: 202207
  27. LEVOMEPROMAZINE MALEATE [Concomitant]
     Active Substance: LEVOMEPROMAZINE MALEATE
     Indication: Nausea
     Dosage: UNK, PRN
     Route: 048
     Dates: start: 202207

REACTIONS (2)
  - Adrenal insufficiency [Not Recovered/Not Resolved]
  - Hypomagnesaemia [Not Recovered/Not Resolved]

NARRATIVE: CASE EVENT DATE: 20220727
